FAERS Safety Report 10080469 (Version 2)
Quarter: 2014Q2

REPORT INFORMATION
  Report Type: Spontaneous
  Country: US (occurrence: US)
  Receive Date: 20140416
  Receipt Date: 20140618
  Transmission Date: 20141212
  Serious: Yes (Other)
  Sender: FDA-Public Use
  Company Number: US-AMGEN-USASP2014026124

PATIENT
  Sex: Female

DRUGS (2)
  1. XGEVA [Suspect]
     Indication: METASTASES TO BONE
     Dosage: UNK
     Route: 065
  2. CRIZOTINIB [Concomitant]
     Dosage: UNK
     Route: 065

REACTIONS (2)
  - Impaired gastric emptying [Recovering/Resolving]
  - Myalgia [Unknown]
